FAERS Safety Report 18560258 (Version 1)
Quarter: 2020Q4

REPORT INFORMATION
  Report Type: Spontaneous
  Country: US (occurrence: US)
  Receive Date: 20201130
  Receipt Date: 20201130
  Transmission Date: 20210114
  Serious: Yes (Other)
  Sender: FDA-Public Use
  Company Number: US-PFIZER INC-2020467897

PATIENT
  Age: 56 Year
  Sex: Female
  Weight: 117.93 kg

DRUGS (12)
  1. VITAMIN D [VITAMIN D NOS] [Concomitant]
     Active Substance: VITAMIN D NOS
     Indication: VITAMIN D DEFICIENCY
     Dosage: 50000 IU, WEEKLY
  2. PREGABALIN. [Suspect]
     Active Substance: PREGABALIN
     Dosage: 125 MG
  3. MISOPROSTOL. [Concomitant]
     Active Substance: MISOPROSTOL
     Dosage: 200 MG, 2X/DAY
  4. PREGABALIN. [Suspect]
     Active Substance: PREGABALIN
     Indication: MUSCLE SPASMS
     Dosage: 100 MG, 3X/DAY
     Route: 048
     Dates: start: 2016
  5. DICLOFENAC [Concomitant]
     Active Substance: DICLOFENAC
     Indication: PAIN
     Dosage: 75 MG, 3X/DAY
  6. POTASSIUM [Concomitant]
     Active Substance: POTASSIUM
     Indication: HYPOKALAEMIA
     Dosage: 99 MG, 1X/DAY
     Dates: start: 201402
  7. PREGABALIN. [Suspect]
     Active Substance: PREGABALIN
     Indication: PAIN
     Dosage: 25 MG, 3X/DAY
     Dates: start: 2016
  8. PREGABALIN. [Suspect]
     Active Substance: PREGABALIN
     Indication: LIMB INJURY
     Dosage: 150 MG, 3X/DAY
     Dates: start: 202010
  9. LOSARTAN. [Concomitant]
     Active Substance: LOSARTAN
     Indication: HYPERTENSION
     Dosage: 50 MG
  10. LOSARTAN. [Concomitant]
     Active Substance: LOSARTAN
     Dosage: 100 MG, 1X/DAY
     Dates: start: 202007
  11. MISOPROSTOL. [Concomitant]
     Active Substance: MISOPROSTOL
     Dosage: 200 MG, 3X/DAY
  12. LOSARTAN. [Concomitant]
     Active Substance: LOSARTAN
     Dosage: 100 MG
     Dates: start: 202008

REACTIONS (4)
  - Weight increased [Unknown]
  - Back disorder [Unknown]
  - Weight decreased [Unknown]
  - Intentional product use issue [Unknown]
